FAERS Safety Report 19068803 (Version 2)
Quarter: 2021Q2

REPORT INFORMATION
  Report Type: Report from Study
  Country: US (occurrence: US)
  Receive Date: 20210329
  Receipt Date: 20210408
  Transmission Date: 20210717
  Serious: Yes (Death)
  Sender: FDA-Public Use
  Company Number: US-JNJFOC-20210339311

PATIENT
  Age: 20 Year
  Sex: Female

DRUGS (4)
  1. SPRAVATO [Suspect]
     Active Substance: ESKETAMINE
     Dosage: 56 MG, 1 TOTAL DOSE
     Dates: start: 20200515, end: 20200515
  2. SPRAVATO [Suspect]
     Active Substance: ESKETAMINE
     Indication: DEPRESSION
     Dosage: 56 MG, 8 TOTAL DOSES
     Dates: start: 20200210, end: 20200317
  3. SPRAVATO [Suspect]
     Active Substance: ESKETAMINE
     Dosage: 84  MG, 14 TOTAL DOSES
     Dates: start: 20200324, end: 20200511
  4. SPRAVATO [Suspect]
     Active Substance: ESKETAMINE
     Dosage: 84  MG, 32 TOTAL DOSES
     Dates: start: 20200518, end: 20201229

REACTIONS (1)
  - Death [Fatal]

NARRATIVE: CASE EVENT DATE: 202102
